FAERS Safety Report 16887650 (Version 2)
Quarter: 2019Q4

REPORT INFORMATION
  Report Type: Spontaneous
  Country: CA (occurrence: CA)
  Receive Date: 20191005
  Receipt Date: 20191126
  Transmission Date: 20200122
  Serious: Yes (Hospitalization, Other)
  Sender: FDA-Public Use
  Company Number: CA-ROCHE-2427945

PATIENT
  Sex: Female

DRUGS (4)
  1. CODEINE [Concomitant]
     Active Substance: CODEINE
  2. DEXILANT [Concomitant]
     Active Substance: DEXLANSOPRAZOLE
  3. CELLCEPT [Suspect]
     Active Substance: MYCOPHENOLATE MOFETIL\MYCOPHENOLATE MOFETIL HYDROCHLORIDE
     Indication: PRODUCT USED FOR UNKNOWN INDICATION
     Route: 065
  4. CORTISONE [Concomitant]
     Active Substance: CORTISONE

REACTIONS (5)
  - Treatment failure [Unknown]
  - Pneumonia [Recovered/Resolved]
  - Ill-defined disorder [Unknown]
  - Polychondritis [Unknown]
  - Vasculitis [Unknown]

NARRATIVE: CASE EVENT DATE: 2019
